FAERS Safety Report 6810866-3 (Version None)
Quarter: 2010Q2

REPORT INFORMATION
  Report Type: 
  Country: None (occurrence: None)
  Receive Date: 20100630
  Receipt Date: 20080129
  Transmission Date: 20101027
  Serious: Yes (Other)
  Sender: FDA-Public Use
  Company Number: US-PFIZER INC-2008009104

PATIENT
  Sex: Male

DRUGS (3)
  1. NICOTINE [Suspect]
     Indication: SMOKING CESSATION THERAPY
     Dosage: DAILY
     Dates: start: 20060501
  2. HYDROXYUREA [Concomitant]
     Indication: POLYCYTHAEMIA
  3. SPIRIVA [Concomitant]
     Indication: CHRONIC OBSTRUCTIVE PULMONARY DISEASE
     Dosage: ONCE A DAY

REACTIONS (1)
  - DRUG DEPENDENCE [None]
